FAERS Safety Report 5072458-9 (Version None)
Quarter: 2006Q3

REPORT INFORMATION
  Report Type: 
  Country: None (occurrence: None)
  Receive Date: 20060801
  Receipt Date: 20060714
  Transmission Date: 20061208
  Serious: Yes (Hospitalization, Other)
  Sender: FDA-Public Use
  Company Number: US200607004670

PATIENT
  Age: 81 Year
  Sex: Female

DRUGS (2)
  1. HUMAN INSULIN (RDNA ORIGIN)(HUMAN INSULIN (RDNA ORIGIN) UNKNOWN FORMUL [Suspect]
  2. BYETTA [Concomitant]

REACTIONS (17)
  - ARTHRITIS [None]
  - ATRIAL FIBRILLATION [None]
  - BLINDNESS UNILATERAL [None]
  - CARDIAC FAILURE CONGESTIVE [None]
  - CEREBROVASCULAR ACCIDENT [None]
  - CHEST PAIN [None]
  - GASTROOESOPHAGEAL REFLUX DISEASE [None]
  - HEADACHE [None]
  - HEART RATE DECREASED [None]
  - HYPERTENSION [None]
  - MITRAL VALVE PROLAPSE [None]
  - MUSCULOSKELETAL PAIN [None]
  - NECK PAIN [None]
  - SLEEP APNOEA SYNDROME [None]
  - VENTRICULAR TACHYCARDIA [None]
  - VOMITING [None]
  - WEIGHT DECREASED [None]
